FAERS Safety Report 6253806-0 (Version None)
Quarter: 2009Q2

REPORT INFORMATION
  Report Type: 
  Country: None (occurrence: None)
  Receive Date: 20090629
  Receipt Date: 20090629
  Transmission Date: 20091009
  Serious: Yes (Other)
  Sender: FDA-Public Use
  Company Number: None

PATIENT
  Age: 38 Year

DRUGS (1)
  1. BABY ORAJEL [Suspect]

REACTIONS (3)
  - PIGMENTATION DISORDER [None]
  - RASH PRURITIC [None]
  - SCAR [None]
